FAERS Safety Report 7505190-X (Version None)
Quarter: 2011Q2

REPORT INFORMATION
  Report Type: 
  Country: None (occurrence: None)
  Receive Date: 20110517
  Receipt Date: 20110511
  Transmission Date: 20111010
  Serious: Yes (Hospitalization, Disabling, Other)
  Sender: FDA-Public Use
  Company Number: 2010SP062586

PATIENT
  Age: 35 Year
  Sex: Female
  Weight: 106.5953 kg

DRUGS (1)
  1. NUVARING [Suspect]
     Indication: CONTRACEPTION
     Dates: start: 20060301, end: 20061101

REACTIONS (11)
  - FATIGUE [None]
  - HYPOAESTHESIA [None]
  - THROMBOSIS [None]
  - NECK MASS [None]
  - DYSPNOEA [None]
  - MUSCULOSKELETAL CHEST PAIN [None]
  - PALPITATIONS [None]
  - DEEP VEIN THROMBOSIS [None]
  - IMPAIRED WORK ABILITY [None]
  - PULMONARY EMBOLISM [None]
  - WEIGHT INCREASED [None]
